FAERS Safety Report 4276980-4 (Version None)
Quarter: 2004Q1

REPORT INFORMATION
  Report Type: 
  Country: None (occurrence: None)
  Receive Date: 20040109
  Receipt Date: 20031230
  Transmission Date: 20041129
  Serious: Yes (Death, Other)
  Sender: FDA-Public Use
  Company Number: 12453007

PATIENT
  Sex: Female

DRUGS (2)
  1. METHOTREXATE [Suspect]
     Indication: RHEUMATOID ARTHRITIS
     Dosage: 1 DOSAGE FORM, 1/1 WEEK ORAL
     Route: 048
     Dates: start: 19970701
  2. FOLIC ACID [Concomitant]

REACTIONS (9)
  - BLOOD CREATININE ABNORMAL [None]
  - CREATININE RENAL CLEARANCE DECREASED [None]
  - HAEMOGLOBIN ABNORMAL [None]
  - LABORATORY TEST ABNORMAL [None]
  - LYMPHOPENIA [None]
  - MEAN CELL VOLUME ABNORMAL [None]
  - PLATELET COUNT ABNORMAL [None]
  - PNEUMONIA PNEUMOCOCCAL [None]
  - WHITE BLOOD CELL COUNT ABNORMAL [None]
